FAERS Safety Report 24634050 (Version 3)
Quarter: 2025Q3

REPORT INFORMATION
  Report Type: Spontaneous
  Country: EU (occurrence: EU)
  Receive Date: 20241119
  Receipt Date: 20250829
  Transmission Date: 20251021
  Serious: Yes (Other)
  Sender: CELLTRION
  Company Number: EU-ABBVIE-5758550

PATIENT

DRUGS (30)
  1. ADALIMUMAB [Suspect]
     Active Substance: ADALIMUMAB
     Indication: Cystoid macular oedema
     Dosage: EVERY 1 WEEK, UNK, QW (DOSAGE1: UNIT=NOT AVAILABLE)
     Route: 058
  2. ADALIMUMAB [Suspect]
     Active Substance: ADALIMUMAB
     Indication: Retinitis pigmentosa
  3. INFLIXIMAB [Suspect]
     Active Substance: INFLIXIMAB
     Indication: Retinitis pigmentosa
     Route: 048
  4. INFLIXIMAB [Suspect]
     Active Substance: INFLIXIMAB
     Indication: Cystoid macular oedema
  5. INFLIXIMAB [Suspect]
     Active Substance: INFLIXIMAB
     Route: 065
  6. ACETAZOLAMIDE SODIUM [Suspect]
     Active Substance: ACETAZOLAMIDE SODIUM
     Indication: Cystoid macular oedema
     Route: 048
  7. ACETAZOLAMIDE SODIUM [Suspect]
     Active Substance: ACETAZOLAMIDE SODIUM
     Indication: Retinitis pigmentosa
     Route: 048
  8. AZATHIOPRINE SODIUM [Suspect]
     Active Substance: AZATHIOPRINE SODIUM
     Indication: Cystoid macular oedema
     Route: 048
  9. AZATHIOPRINE SODIUM [Suspect]
     Active Substance: AZATHIOPRINE SODIUM
     Indication: Retinitis pigmentosa
  10. CYCLOSPORINE [Suspect]
     Active Substance: CYCLOSPORINE
     Indication: Cystoid macular oedema
     Route: 048
  11. CYCLOSPORINE [Suspect]
     Active Substance: CYCLOSPORINE
     Indication: Retinitis pigmentosa
  12. DECADRON (DEXAMETHASONE SODIUM PHOSPHATE) [Suspect]
     Active Substance: DEXAMETHASONE SODIUM PHOSPHATE
     Indication: Retinitis pigmentosa
  13. DECADRON (DEXAMETHASONE SODIUM PHOSPHATE) [Suspect]
     Active Substance: DEXAMETHASONE SODIUM PHOSPHATE
     Indication: Cystoid macular oedema
  14. DEXAMETHASONE [Suspect]
     Active Substance: DEXAMETHASONE
     Indication: Cystoid macular oedema
  15. DEXAMETHASONE [Suspect]
     Active Substance: DEXAMETHASONE
     Indication: Retinitis pigmentosa
  16. DEXAMETHASONE [Suspect]
     Active Substance: DEXAMETHASONE
     Indication: Retinitis pigmentosa
  17. DORZOLAMIDE [Suspect]
     Active Substance: DORZOLAMIDE
     Indication: Cystoid macular oedema
     Route: 065
  18. DORZOLAMIDE HYDROCHLORIDE [Suspect]
     Active Substance: DORZOLAMIDE HYDROCHLORIDE
     Indication: Cystoid macular oedema
     Route: 065
  19. DORZOLAMIDE HYDROCHLORIDE [Suspect]
     Active Substance: DORZOLAMIDE HYDROCHLORIDE
     Indication: Retinitis pigmentosa
  20. IMURAN [Suspect]
     Active Substance: AZATHIOPRINE
     Indication: Retinitis pigmentosa
     Route: 048
  21. IMURAN [Suspect]
     Active Substance: AZATHIOPRINE
     Indication: Cystoid macular oedema
  22. METHOTREXATE [Suspect]
     Active Substance: METHOTREXATE
     Indication: Retinitis pigmentosa
     Route: 048
  23. METHOTREXATE [Suspect]
     Active Substance: METHOTREXATE
     Indication: Cystoid macular oedema
  24. METHOTREXATE [Suspect]
     Active Substance: METHOTREXATE
     Route: 065
  25. NEPAFENAC [Suspect]
     Active Substance: NEPAFENAC
     Indication: Cystoid macular oedema
     Route: 047
  26. NEPAFENAC [Suspect]
     Active Substance: NEPAFENAC
     Indication: Retinitis pigmentosa
  27. NEPAFENAC [Suspect]
     Active Substance: NEPAFENAC
     Indication: Cystoid macular oedema
     Route: 065
  28. TRIAMCINOLONE ACETONIDE [Suspect]
     Active Substance: TRIAMCINOLONE ACETONIDE
     Indication: Cystoid macular oedema
  29. TRIAMCINOLONE ACETONIDE [Suspect]
     Active Substance: TRIAMCINOLONE ACETONIDE
     Indication: Retinitis pigmentosa
  30. TRIAMCINOLONE ACETONIDE [Suspect]
     Active Substance: TRIAMCINOLONE ACETONIDE
     Route: 065

REACTIONS (7)
  - Cystoid macular oedema [Recovered/Resolved]
  - Macular oedema [Recovered/Resolved]
  - Renal colic [Unknown]
  - Therapeutic product effect incomplete [Unknown]
  - Drug ineffective for unapproved indication [Unknown]
  - Intentional product use issue [Unknown]
  - Off label use [Unknown]
